FAERS Safety Report 7042904-X (Version None)
Quarter: 2010Q4

REPORT INFORMATION
  Report Type: 
  Country: None (occurrence: None)
  Receive Date: 20101013
  Receipt Date: 20100205
  Transmission Date: 20110411
  Serious: No
  Sender: FDA-Public Use
  Company Number: US-ASTRAZENECA-2010SE05330

PATIENT
  Age: 55 Year
  Sex: Female
  Weight: 97.5 kg

DRUGS (2)
  1. SYMBICORT [Suspect]
     Dosage: 2 PUFFS
     Route: 055
     Dates: start: 20080101
  2. SYMBICORT [Suspect]
     Dosage: 2 PUFFS
     Route: 055

REACTIONS (3)
  - CHEST DISCOMFORT [None]
  - INAPPROPRIATE SCHEDULE OF DRUG ADMINISTRATION [None]
  - NASAL CONGESTION [None]
